FAERS Safety Report 7965924-7 (Version None)
Quarter: 2011Q4

REPORT INFORMATION
  Report Type: 
  Country: None (occurrence: None)
  Receive Date: 20111208
  Receipt Date: 20111130
  Transmission Date: 20120403
  Serious: Yes (Other)
  Sender: FDA-Public Use
  Company Number: SE-GLAXOSMITHKLINE-B0767574A

PATIENT
  Sex: Female
  Weight: 58 kg

DRUGS (3)
  1. LOMUDAL [Concomitant]
  2. FLUTICASONE PROPIONATE [Suspect]
     Indication: PRODUCT USED FOR UNKNOWN INDICATION
     Dosage: 2PUFF THREE TIMES PER DAY
     Route: 055
     Dates: start: 20110101
  3. SEREVENT [Concomitant]

REACTIONS (3)
  - ORAL FUNGAL INFECTION [None]
  - PNEUMONIA [None]
  - MUSCLE SPASMS [None]
